FAERS Safety Report 11429038 (Version 1)
Quarter: 2015Q3

REPORT INFORMATION
  Report Type: Spontaneous
  Country: US (occurrence: US)
  Receive Date: 20150828
  Receipt Date: 20150828
  Transmission Date: 20151125
  Serious: No
  Sender: FDA-Public Use
  Company Number: US-ROCHE-1218597

PATIENT
  Sex: Female

DRUGS (2)
  1. PEGASYS [Suspect]
     Active Substance: PEGINTERFERON ALFA-2A
     Indication: CHRONIC HEPATITIS C
     Route: 058
     Dates: start: 20130222
  2. RIBAVIRIN. [Suspect]
     Active Substance: RIBAVIRIN
     Indication: CHRONIC HEPATITIS C
     Dosage: DIVIDED DOSES, 400/400
     Route: 048
     Dates: start: 20130222

REACTIONS (6)
  - Cough [Unknown]
  - Neck mass [Unknown]
  - Body temperature increased [Unknown]
  - Epistaxis [Unknown]
  - Choking [Unknown]
  - White blood cell count decreased [Unknown]
